FAERS Safety Report 5636048-9 (Version None)
Quarter: 2008Q1

REPORT INFORMATION
  Report Type: 
  Country: None (occurrence: None)
  Receive Date: 20080220
  Receipt Date: 20080220
  Transmission Date: 20080703
  Serious: No
  Sender: FDA-Public Use
  Company Number: None

PATIENT
  Age: 37 Year
  Sex: Female
  Weight: 70.3075 kg

DRUGS (4)
  1. ZYRTEC [Suspect]
     Indication: PROPHYLAXIS
     Dosage: ONE PILL ONCE A DAY PO
     Route: 048
     Dates: start: 20061215, end: 20080201
  2. ZYRTEC [Suspect]
     Indication: SINUSITIS
     Dosage: ONE PILL ONCE A DAY PO
     Route: 048
     Dates: start: 20061215, end: 20080201
  3. SINGULAIR [Concomitant]
  4. TYLENOL COLD/SINUS WITH PHENYLEPHRINE [Concomitant]

REACTIONS (12)
  - BLOOD URINE PRESENT [None]
  - CONDITION AGGRAVATED [None]
  - DEPRESSION [None]
  - DIZZINESS [None]
  - FAT TISSUE INCREASED [None]
  - FEELING ABNORMAL [None]
  - HUNGER [None]
  - HYPERHIDROSIS [None]
  - PERSONALITY CHANGE [None]
  - SINUSITIS [None]
  - SUICIDAL IDEATION [None]
  - WEIGHT INCREASED [None]
